FAERS Safety Report 25492139 (Version 1)
Quarter: 2025Q2

REPORT INFORMATION
  Report Type: Spontaneous
  Country: SD (occurrence: SD)
  Receive Date: 20250630
  Receipt Date: 20250630
  Transmission Date: 20250716
  Serious: Yes (Hospitalization, Other)
  Sender: IPCA
  Company Number: SD-IPCA LABORATORIES LIMITED-IPC-2025-SD-001689

PATIENT

DRUGS (2)
  1. WARFARIN SODIUM [Suspect]
     Active Substance: WARFARIN SODIUM
     Indication: Heart valve replacement
     Route: 065
  2. WARFARIN SODIUM [Suspect]
     Active Substance: WARFARIN SODIUM
     Route: 065

REACTIONS (5)
  - Skin necrosis [Recovering/Resolving]
  - Thrombocytopenia [Recovering/Resolving]
  - International normalised ratio increased [Recovering/Resolving]
  - Intentional product use issue [Unknown]
  - Overdose [Unknown]
